FAERS Safety Report 5267766-2 (Version None)
Quarter: 2007Q1

REPORT INFORMATION
  Report Type: 
  Country: None (occurrence: None)
  Receive Date: 20070316
  Receipt Date: 20070306
  Transmission Date: 20070707
  Serious: Yes (Hospitalization)
  Sender: FDA-Public Use
  Company Number: SE-PFIZER INC-2007017453

PATIENT
  Sex: Male

DRUGS (1)
  1. INSPRA [Suspect]
     Route: 048
     Dates: start: 20061006, end: 20061219

REACTIONS (1)
  - DIABETES MELLITUS [None]
